FAERS Safety Report 18617794 (Version 5)
Quarter: 2024Q1

REPORT INFORMATION
  Report Type: Spontaneous
  Country: JP (occurrence: JP)
  Receive Date: 20201215
  Receipt Date: 20240322
  Transmission Date: 20240409
  Serious: Yes (Life-Threatening, Hospitalization, Other)
  Sender: FDA-Public Use
  Company Number: JP-UCBSA-2020051177

PATIENT
  Age: 88 Year
  Sex: Female
  Weight: 38 kg

DRUGS (36)
  1. CIMZIA [Suspect]
     Active Substance: CERTOLIZUMAB PEGOL
     Indication: Rheumatoid arthritis
     Dosage: 200 MILLIGRAM, EV 2 WEEKS(QOW)
     Route: 058
     Dates: start: 20200702, end: 20201119
  2. METHOTREXATE SODIUM [Suspect]
     Active Substance: METHOTREXATE SODIUM
     Indication: Product used for unknown indication
     Dosage: 8 MILLIGRAM, WEEKLY (QW)
     Route: 048
     Dates: end: 201412
  3. METHOTREXATE SODIUM [Suspect]
     Active Substance: METHOTREXATE SODIUM
     Dosage: 10 MILLIGRAM, WEEKLY (QW)
     Route: 048
     Dates: start: 201412, end: 201505
  4. METHOTREXATE SODIUM [Suspect]
     Active Substance: METHOTREXATE SODIUM
     Dosage: 8 MILLIGRAM, WEEKLY (QW)
     Route: 048
     Dates: start: 201505, end: 201507
  5. METHOTREXATE SODIUM [Suspect]
     Active Substance: METHOTREXATE SODIUM
     Dosage: 6 MILLIGRAM, WEEKLY (QW)
     Route: 048
     Dates: start: 201507, end: 201708
  6. METHOTREXATE SODIUM [Suspect]
     Active Substance: METHOTREXATE SODIUM
     Dosage: 4 MILLIGRAM, WEEKLY (QW)
     Route: 048
     Dates: start: 201708, end: 201801
  7. METHOTREXATE SODIUM [Suspect]
     Active Substance: METHOTREXATE SODIUM
     Dosage: 6 MILLIGRAM, WEEKLY (QW)
     Route: 048
     Dates: start: 202002
  8. PREDNISOLONE ACETATE [Suspect]
     Active Substance: PREDNISOLONE ACETATE
     Indication: Product used for unknown indication
     Dosage: 10 MILLIGRAM, ONCE DAILY (QD)
     Route: 042
  9. PREDNISOLONE ACETATE [Suspect]
     Active Substance: PREDNISOLONE ACETATE
     Dosage: 8 MILLIGRAM, ONCE DAILY (QD)
     Route: 042
  10. PREDNISOLONE ACETATE [Suspect]
     Active Substance: PREDNISOLONE ACETATE
     Dosage: 5 MILLIGRAM, ONCE DAILY (QD)
     Route: 042
     Dates: end: 201505
  11. PREDNISOLONE ACETATE [Suspect]
     Active Substance: PREDNISOLONE ACETATE
     Dosage: 2.5 MILLIGRAM, ONCE DAILY (QD)
     Route: 042
     Dates: start: 201505, end: 201509
  12. PREDNISOLONE ACETATE [Suspect]
     Active Substance: PREDNISOLONE ACETATE
     Dosage: 5 MILLIGRAM, ONCE DAILY (QD)
     Route: 042
     Dates: start: 201509, end: 201603
  13. PREDNISOLONE ACETATE [Suspect]
     Active Substance: PREDNISOLONE ACETATE
     Dosage: 4 MILLIGRAM, ONCE DAILY (QD)
     Route: 042
     Dates: start: 201607, end: 201608
  14. PREDNISOLONE ACETATE [Suspect]
     Active Substance: PREDNISOLONE ACETATE
     Dosage: 2 MILLIGRAM, ONCE DAILY (QD)
     Route: 042
     Dates: start: 201608, end: 201801
  15. PREDNISOLONE ACETATE [Suspect]
     Active Substance: PREDNISOLONE ACETATE
     Dosage: 1 MILLIGRAM, ONCE DAILY (QD)
     Route: 042
     Dates: start: 201801, end: 201806
  16. PREDNISOLONE ACETATE [Suspect]
     Active Substance: PREDNISOLONE ACETATE
     Dosage: 5 MILLIGRAM, ONCE DAILY (QD)
     Route: 042
     Dates: start: 202001
  17. PROGRAF [Suspect]
     Active Substance: TACROLIMUS
     Indication: Rheumatoid arthritis
     Dosage: 1 MILLIGRAM, ONCE DAILY (QD)
     Route: 048
     Dates: start: 20150201, end: 201504
  18. PROGRAF [Suspect]
     Active Substance: TACROLIMUS
     Dosage: 1.5 MILLIGRAM, ONCE DAILY (QD)
     Route: 048
     Dates: start: 201504, end: 201505
  19. PROGRAF [Suspect]
     Active Substance: TACROLIMUS
     Dosage: 2 MILLIGRAM, ONCE DAILY (QD)
     Route: 048
     Dates: start: 201505, end: 201609
  20. PROGRAF [Suspect]
     Active Substance: TACROLIMUS
     Dosage: 1.5 MILLIGRAM, ONCE DAILY (QD)
     Route: 048
     Dates: start: 201609, end: 201802
  21. PROGRAF [Suspect]
     Active Substance: TACROLIMUS
     Dosage: 1 MILLIGRAM, ONCE DAILY (QD)
     Route: 048
     Dates: start: 201802, end: 201812
  22. PROGRAF [Suspect]
     Active Substance: TACROLIMUS
     Dosage: 1.5 MILLIGRAM, ONCE DAILY (QD)
     Route: 048
     Dates: start: 202001, end: 202005
  23. PROGRAF [Suspect]
     Active Substance: TACROLIMUS
     Dosage: 2 MILLIGRAM, ONCE DAILY (QD)
     Route: 048
     Dates: start: 202005
  24. PROGRAF [Suspect]
     Active Substance: TACROLIMUS
     Dosage: 2 MILLIGRAM
     Route: 048
     Dates: start: 20201120
  25. SIMPONI [Concomitant]
     Active Substance: GOLIMUMAB
     Indication: Product used for unknown indication
     Dosage: UNK
     Route: 058
  26. PROPOFOL [Concomitant]
     Active Substance: PROPOFOL
     Indication: Product used for unknown indication
     Dosage: 336 MILLIGRAM, ONCE DAILY (QD)
     Route: 042
  27. FENTANYL [Concomitant]
     Active Substance: FENTANYL\FENTANYL CITRATE
     Indication: Product used for unknown indication
     Dosage: UNK
     Route: 042
  28. MICAFUNGIN SODIUM [Concomitant]
     Active Substance: MICAFUNGIN SODIUM
     Indication: Systemic candida
     Dosage: UNK
  29. FOLIC ACID [Concomitant]
     Active Substance: FOLIC ACID
     Indication: Product used for unknown indication
     Dosage: 5 MILLIGRAM
     Route: 048
  30. INDAPAMIDE [Concomitant]
     Active Substance: INDAPAMIDE
     Indication: Product used for unknown indication
     Dosage: 0.5 MILLIGRAM
     Route: 048
  31. NORVASC [Concomitant]
     Active Substance: AMLODIPINE BESYLATE
     Indication: Product used for unknown indication
     Dosage: 2.5 MILLIGRAM
     Route: 048
  32. ALENDRONATE SODIUM [Concomitant]
     Active Substance: ALENDRONATE SODIUM
     Indication: Product used for unknown indication
     Dosage: 35 MILLIGRAM
     Route: 048
  33. WARFARIN [Concomitant]
     Active Substance: WARFARIN
     Indication: Product used for unknown indication
     Dosage: 1 MILLIGRAM
     Route: 048
  34. FOLIC ACID [Concomitant]
     Active Substance: FOLIC ACID
     Indication: Product used for unknown indication
     Dosage: 5 MILLIGRAM
     Route: 048
  35. NORVASC [Concomitant]
     Active Substance: AMLODIPINE BESYLATE
     Indication: Product used for unknown indication
     Dosage: 2.5 MILLIGRAM
     Route: 048
  36. FOSAMAC 35MG [Concomitant]
     Indication: Product used for unknown indication
     Dosage: 35 MILLIGRAM
     Route: 048

REACTIONS (10)
  - Gastrointestinal perforation [Recovered/Resolved]
  - Peritonitis [Recovered/Resolved]
  - Tumour perforation [Recovered/Resolved]
  - Ileocaecal resection [Recovered/Resolved]
  - Systemic candida [Recovered/Resolved]
  - Diffuse large B-cell lymphoma [Recovering/Resolving]
  - Abdominal abscess [Recovering/Resolving]
  - Intestinal anastomosis [Unknown]
  - Abdominal cavity drainage [Unknown]
  - Stoma creation [Unknown]

NARRATIVE: CASE EVENT DATE: 20201130
